FAERS Safety Report 8829352 (Version 1)
Quarter: 2012Q4

REPORT INFORMATION
  Report Type: 
  Country: MA (occurrence: MA)
  Receive Date: 20121008
  Receipt Date: 20121008
  Transmission Date: 20130627
  Serious: Yes (Disabling)
  Sender: FDA-Public Use
  Company Number: MA-ROCHE-1142303

PATIENT
  Sex: Male
  Weight: 65 kg

DRUGS (5)
  1. MABTHERA [Suspect]
     Indication: CHRONIC LYMPHOCYTIC LEUKAEMIA
     Route: 042
     Dates: start: 20120516, end: 20120823
  2. FLUDARABINE [Concomitant]
     Indication: CHRONIC LYMPHOCYTIC LEUKAEMIA
  3. CYCLOPHOSPHAMIDE [Concomitant]
     Indication: CHRONIC LYMPHOCYTIC LEUKAEMIA
  4. ONDANSETRON [Concomitant]
     Indication: CHRONIC LYMPHOCYTIC LEUKAEMIA
  5. ZELITREX [Concomitant]
     Indication: PROPHYLAXIS

REACTIONS (1)
  - Deafness [Unknown]
